FAERS Safety Report 9985205 (Version 3)
Quarter: 2014Q3

REPORT INFORMATION
  Report Type: Report from Study
  Country: US (occurrence: US)
  Receive Date: 20140307
  Receipt Date: 20140909
  Transmission Date: 20150326
  Serious: Yes (Other)
  Sender: FDA-Public Use
  Company Number: US-ABBVIE-14P-163-1185537-00

PATIENT
  Age: 50 Year
  Sex: Male
  Weight: 65.83 kg

DRUGS (6)
  1. MELATONIN [Concomitant]
     Active Substance: MELATONIN
     Indication: INSOMNIA
  2. TRAMADOL [Concomitant]
     Active Substance: TRAMADOL
     Indication: PAIN
  3. AMITRIPTYLINE [Concomitant]
     Active Substance: AMITRIPTYLINE
     Indication: INSOMNIA
  4. HUMIRA [Suspect]
     Active Substance: ADALIMUMAB
     Indication: CROHN^S DISEASE
  5. HUMIRA [Suspect]
     Active Substance: ADALIMUMAB
     Indication: RHEUMATOID ARTHRITIS
     Route: 058
     Dates: start: 2006
  6. METHOTREXATE [Concomitant]
     Active Substance: METHOTREXATE
     Indication: PRODUCT USED FOR UNKNOWN INDICATION
     Dosage: 5 PILLS EOW (OPPOSITE HUMIRA)

REACTIONS (15)
  - Psoriasis [Recovering/Resolving]
  - Fall [Recovered/Resolved]
  - Neurodermatitis [Not Recovered/Not Resolved]
  - Migraine with aura [Not Recovered/Not Resolved]
  - Herpes zoster [Not Recovered/Not Resolved]
  - Depression [Not Recovered/Not Resolved]
  - Headache [Not Recovered/Not Resolved]
  - Haemorrhoids [Recovered/Resolved]
  - Rash [Not Recovered/Not Resolved]
  - Asthenia [Recovered/Resolved]
  - Brain mass [Not Recovered/Not Resolved]
  - Epilepsy [Not Recovered/Not Resolved]
  - Speech disorder [Recovered/Resolved]
  - Migraine [Recovered/Resolved]
  - Dermatitis [Not Recovered/Not Resolved]

NARRATIVE: CASE EVENT DATE: 201304
